FAERS Safety Report 19143451 (Version 1)
Quarter: 2021Q2

REPORT INFORMATION
  Report Type: Spontaneous
  Country: ES (occurrence: ES)
  Receive Date: 20210415
  Receipt Date: 20210415
  Transmission Date: 20210717
  Serious: Yes (Other)
  Sender: FDA-Public Use
  Company Number: ES-JNJFOC-20210429005

PATIENT
  Sex: Male
  Weight: 1.7 kg

DRUGS (12)
  1. PREDNISONE. [Suspect]
     Active Substance: PREDNISONE
  2. HEPARIN [Suspect]
     Active Substance: HEPARIN SODIUM
  3. HYDROXYCHLOROQUINE [Suspect]
     Active Substance: HYDROXYCHLOROQUINE
  4. VITAMIN D [ERGOCALCIFEROL] [Suspect]
     Active Substance: ERGOCALCIFEROL
  5. VELETRI [Suspect]
     Active Substance: EPOPROSTENOL
     Indication: DYSPNOEA
     Route: 065
  6. ASPRIN [Suspect]
     Active Substance: ASPIRIN
  7. AZATHIOPRINE. [Suspect]
     Active Substance: AZATHIOPRINE
  8. ECULIZUMAB [Suspect]
     Active Substance: ECULIZUMAB
     Route: 065
  9. SILDENAFIL. [Suspect]
     Active Substance: SILDENAFIL
     Indication: DYSPNOEA
     Route: 065
  10. ECULIZUMAB [Suspect]
     Active Substance: ECULIZUMAB
     Route: 065
  11. VELETRI [Suspect]
     Active Substance: EPOPROSTENOL
     Indication: PULMONARY HYPERTENSION
  12. SILDENAFIL. [Suspect]
     Active Substance: SILDENAFIL
     Indication: PULMONARY HYPERTENSION

REACTIONS (2)
  - Premature baby [Unknown]
  - Foetal exposure during pregnancy [Unknown]
